FAERS Safety Report 4393085-2 (Version None)
Quarter: 2004Q3

REPORT INFORMATION
  Report Type: 
  Country: None (occurrence: None)
  Receive Date: 20040702
  Receipt Date: 20040407
  Transmission Date: 20050211
  Serious: Yes (Other)
  Sender: FDA-Public Use
  Company Number: 2004UW06970

PATIENT
  Age: 81 Year
  Sex: Female
  Weight: 79.3795 kg

DRUGS (4)
  1. CRESTOR [Suspect]
     Indication: BLOOD CHOLESTEROL INCREASED
     Dosage: 10 MG PO
     Route: 048
     Dates: end: 20040401
  2. VERAPAMIL [Concomitant]
  3. METOPROLOL [Concomitant]
  4. COUMADIN [Concomitant]

REACTIONS (4)
  - ASTHENIA [None]
  - CONFUSIONAL STATE [None]
  - DYSURIA [None]
  - PAIN [None]
